FAERS Safety Report 10078403 (Version 1)
Quarter: 2014Q2

REPORT INFORMATION
  Report Type: Spontaneous
  Country: US (occurrence: None)
  Receive Date: 20140401
  Receipt Date: 20140401
  Transmission Date: 20141212
  Serious: Yes (Other)
  Sender: FDA-Public Use
  Company Number: HA12-077-AE

PATIENT
  Age: 39 Year
  Sex: Female
  Weight: 72.58 kg

DRUGS (1)
  1. GABAPENTIN [Suspect]
     Indication: FIBROMYALGIA
     Dosage: 3 CAPSULE, TID ORAL
     Route: 048
     Dates: start: 2010

REACTIONS (10)
  - Dry skin [None]
  - Discomfort [None]
  - Tension headache [None]
  - Chest discomfort [None]
  - Jaw disorder [None]
  - Cardiac disorder [None]
  - Hyperhidrosis [None]
  - Insomnia [None]
  - Head discomfort [None]
  - Hot flush [None]
